FAERS Safety Report 19427276 (Version 1)
Quarter: 2021Q2

REPORT INFORMATION
  Report Type: Spontaneous
  Country: US (occurrence: US)
  Receive Date: 20210616
  Receipt Date: 20210616
  Transmission Date: 20210717
  Serious: Yes (Life-Threatening, Disabling)
  Sender: FDA-Public Use
  Company Number: None

PATIENT
  Age: 47 Year
  Sex: Male
  Weight: 77.4 kg

DRUGS (13)
  1. ABILIFY [Suspect]
     Active Substance: ARIPIPRAZOLE
     Indication: MAJOR DEPRESSION
     Dosage: ?          OTHER ROUTE:INJECTION IN THE SHOULDER.?
     Dates: start: 20170726, end: 20200601
  2. VITAMIN B12 [Concomitant]
     Active Substance: CYANOCOBALAMIN
  3. MUCUNA PRURIENS [Concomitant]
     Active Substance: HERBALS
  4. GABA [Concomitant]
     Active Substance: HOMEOPATHICS
  5. NIACIN. [Concomitant]
     Active Substance: NIACIN
  6. PRICKLY ASH EXTRACT [Concomitant]
  7. MELATONIN [Concomitant]
     Active Substance: MELATONIN
  8. INVEGA [Suspect]
     Active Substance: PALIPERIDONE
     Indication: PRODUCT USED FOR UNKNOWN INDICATION
     Dosage: ?          QUANTITY:1 CAPSULE(S);?
     Route: 048
     Dates: start: 20121203, end: 20130131
  9. TAURINE [Concomitant]
     Active Substance: TAURINE
  10. IODINE. [Concomitant]
     Active Substance: IODINE
  11. WELLBUTRIN [Concomitant]
     Active Substance: BUPROPION HYDROCHLORIDE
  12. GLYCINE. [Concomitant]
     Active Substance: GLYCINE
  13. MSM [Concomitant]
     Active Substance: DIMETHYL SULFONE

REACTIONS (5)
  - Product complaint [None]
  - Weight decreased [None]
  - Schizophrenia [None]
  - Restless legs syndrome [None]
  - Blood cholesterol [None]

NARRATIVE: CASE EVENT DATE: 20210616
